FAERS Safety Report 9749811 (Version 2)
Quarter: 2013Q4

REPORT INFORMATION
  Report Type: Spontaneous
  Country: US (occurrence: US)
  Receive Date: 20131212
  Receipt Date: 20131212
  Transmission Date: 20140711
  Serious: Yes (Hospitalization, Disabling, Other)
  Sender: FDA-Public Use
  Company Number: US-009507513-1108USA01139

PATIENT
  Sex: Female
  Weight: 90.72 kg

DRUGS (3)
  1. FOSAMAX [Suspect]
     Indication: OSTEOPOROSIS
     Dosage: 70 MG, QW
     Route: 048
     Dates: start: 1995, end: 20080302
  2. FOSAMAX [Suspect]
     Indication: OSTEOPOROSIS
     Dosage: 70 MG, QW
     Route: 048
     Dates: start: 20080303, end: 2010
  3. CALCIUM (UNSPECIFIED) [Concomitant]

REACTIONS (52)
  - Femur fracture [Not Recovered/Not Resolved]
  - Anaemia postoperative [Unknown]
  - Venous thrombosis [Unknown]
  - Deafness neurosensory [Unknown]
  - Femur fracture [Unknown]
  - Femur fracture [Unknown]
  - Thrombosis [Unknown]
  - Mitral valve prolapse [Unknown]
  - Hypertension [Unknown]
  - Blood cholesterol increased [Unknown]
  - Hypothyroidism [Unknown]
  - Mood altered [Unknown]
  - Synovial cyst [Unknown]
  - Benign bone neoplasm [Unknown]
  - Haematuria [Unknown]
  - Sinus tachycardia [Unknown]
  - Mitral valve incompetence [Unknown]
  - Aortic stenosis [Unknown]
  - Asthma [Unknown]
  - Depression [Unknown]
  - Chest pain [Unknown]
  - Dyspnoea [Unknown]
  - Varicose vein [Unknown]
  - Oedema [Unknown]
  - Intervertebral disc degeneration [Unknown]
  - Ear disorder [Unknown]
  - Fracture nonunion [Unknown]
  - Deep vein thrombosis [Unknown]
  - Toothache [Unknown]
  - Ear disorder [Unknown]
  - Cardiac murmur [Unknown]
  - Ulcer [Unknown]
  - Skin lesion [Unknown]
  - Tympanosclerosis [Unknown]
  - Ear pain [Unknown]
  - Middle ear disorder [Unknown]
  - Rhinitis allergic [Unknown]
  - Anxiety [Unknown]
  - Cough [Unknown]
  - Tinnitus [Unknown]
  - Talipes [Unknown]
  - Foot deformity [Unknown]
  - Foot deformity [Unknown]
  - Stress fracture [Unknown]
  - Muscle atrophy [Unknown]
  - Emphysema [Unknown]
  - Cardiovascular disorder [Unknown]
  - Headache [Unknown]
  - Arthralgia [Unknown]
  - Joint swelling [Unknown]
  - Arthralgia [Unknown]
  - Gastrooesophageal reflux disease [Unknown]
